FAERS Safety Report 14860530 (Version 1)
Quarter: 2018Q2

REPORT INFORMATION
  Report Type: Spontaneous
  Country: US (occurrence: US)
  Receive Date: 20180423
  Receipt Date: 20180423
  Transmission Date: 20180711
  Serious: Yes (Other)
  Sender: FDA-Public Use
  Company Number: None

PATIENT
  Age: 58 Year
  Sex: Female
  Weight: 96.3 kg

DRUGS (14)
  1. DIAZEPAM. [Concomitant]
     Active Substance: DIAZEPAM
  2. OXYCODONE AND ACETAMINOPHEN [Suspect]
     Active Substance: ACETAMINOPHEN\OXYCODONE HYDROCHLORIDE
     Indication: SPINAL COLUMN INJURY
     Dosage: ?          QUANTITY:1 TABLET(S);?
     Route: 048
  3. PHENTERMINE. [Concomitant]
     Active Substance: PHENTERMINE
  4. VITAMIN D [Concomitant]
     Active Substance: CHOLECALCIFEROL
  5. MIRALAX [Concomitant]
     Active Substance: POLYETHYLENE GLYCOL 3350
  6. RANITIDINE. [Concomitant]
     Active Substance: RANITIDINE
  7. APIDRA SOLOSTAR PEN [Concomitant]
  8. VALSARTAN. [Concomitant]
     Active Substance: VALSARTAN
  9. SYMLINPEN [Concomitant]
     Active Substance: PRAMLINTIDE ACETATE
  10. INVOKANA [Concomitant]
     Active Substance: CANAGLIFLOZIN
  11. NEXIUM [Concomitant]
     Active Substance: ESOMEPRAZOLE MAGNESIUM
  12. VICTOZA [Concomitant]
     Active Substance: LIRAGLUTIDE
  13. ONDANSETRON [Concomitant]
     Active Substance: ONDANSETRON
  14. HUMULIN N KWIK PEN [Concomitant]

REACTIONS (14)
  - Arthropathy [None]
  - Abdominal pain upper [None]
  - Constipation [None]
  - Product quality issue [None]
  - Product taste abnormal [None]
  - Foreign body in respiratory tract [None]
  - Pharyngeal oedema [None]
  - Drug ineffective [None]
  - Feeling abnormal [None]
  - Haemorrhoidal haemorrhage [None]
  - Headache [None]
  - Influenza [None]
  - Nausea [None]
  - Arthralgia [None]

NARRATIVE: CASE EVENT DATE: 20180318
